FAERS Safety Report 8155063-7 (Version None)
Quarter: 2012Q1

REPORT INFORMATION
  Report Type: 
  Country: None (occurrence: None)
  Receive Date: 20120221
  Receipt Date: 20120217
  Transmission Date: 20120608
  Serious: No
  Sender: FDA-Public Use
  Company Number: US-PFIZER INC-2012043620

PATIENT
  Sex: Female
  Weight: 74.83 kg

DRUGS (1)
  1. PRISTIQ [Suspect]
     Indication: DEPRESSION
     Dosage: 100 MG, 1X/DAY
     Route: 048
     Dates: start: 20080101, end: 20120214

REACTIONS (3)
  - IMPATIENCE [None]
  - DEPRESSED MOOD [None]
  - WITHDRAWAL SYNDROME [None]
